FAERS Safety Report 11850802 (Version 1)
Quarter: 2015Q4

REPORT INFORMATION
  Report Type: Spontaneous
  Country: JP (occurrence: JP)
  Receive Date: 20151218
  Receipt Date: 20151218
  Transmission Date: 20160305
  Serious: Yes (Other)
  Sender: FDA-Public Use
  Company Number: JP-GLAXOSMITHKLINE-JP2015JPN176531

PATIENT
  Age: 55 Year
  Sex: Male

DRUGS (2)
  1. METRONIDAZOLE. [Suspect]
     Active Substance: METRONIDAZOLE
     Route: 048
  2. VALTREX [Suspect]
     Active Substance: VALACYCLOVIR HYDROCHLORIDE
     Route: 048

REACTIONS (7)
  - Diarrhoea [Unknown]
  - Dizziness [Unknown]
  - Ataxia [Unknown]
  - Disorientation [Unknown]
  - Nystagmus [Unknown]
  - Wernicke^s encephalopathy [Unknown]
  - Eye movement disorder [Unknown]
